FAERS Safety Report 22114432 (Version 6)
Quarter: 2023Q2

REPORT INFORMATION
  Report Type: Report from Study
  Country: IL (occurrence: IL)
  Receive Date: 20230320
  Receipt Date: 20230524
  Transmission Date: 20230722
  Serious: Yes (Other)
  Sender: FDA-Public Use
  Company Number: IL-002147023-NVSC2023IL045916

PATIENT
  Age: 61 Year
  Sex: Female

DRUGS (3)
  1. PIQRAY [Suspect]
     Active Substance: ALPELISIB
     Indication: Breast cancer metastatic
     Dosage: 150 MG, QD
     Route: 048
     Dates: start: 20230221
  2. PIQRAY [Suspect]
     Active Substance: ALPELISIB
     Dosage: 300 MG, QD
     Route: 048
  3. FASLODEX [Concomitant]
     Active Substance: FULVESTRANT
     Indication: Breast cancer metastatic
     Dosage: UNK
     Route: 065

REACTIONS (10)
  - Wound [Recovering/Resolving]
  - Pain [Unknown]
  - Skin fissures [Not Recovered/Not Resolved]
  - Nasopharyngitis [Recovering/Resolving]
  - Stomatitis [Not Recovered/Not Resolved]
  - Fatigue [Not Recovered/Not Resolved]
  - Erythema [Not Recovered/Not Resolved]
  - Swelling face [Not Recovered/Not Resolved]
  - Pyrexia [Recovering/Resolving]
  - Inappropriate schedule of product administration [Unknown]
